FAERS Safety Report 6512309-6 (Version None)
Quarter: 2009Q4

REPORT INFORMATION
  Report Type: 
  Country: None (occurrence: None)
  Receive Date: 20091222
  Receipt Date: 20090716
  Transmission Date: 20100525
  Serious: No
  Sender: FDA-Public Use
  Company Number: US-ASTRAZENECA-2009UW20190

PATIENT
  Sex: Female
  Weight: 58.5 kg

DRUGS (4)
  1. CRESTOR [Suspect]
     Indication: BLOOD CHOLESTEROL INCREASED
     Route: 048
  2. CRESTOR [Suspect]
     Route: 048
     Dates: start: 20090715
  3. FOSAMAX [Concomitant]
  4. BLOOD PRESSURE MED [Concomitant]

REACTIONS (1)
  - MUSCLE SPASMS [None]
